FAERS Safety Report 5052069-1 (Version None)
Quarter: 2006Q3

REPORT INFORMATION
  Report Type: 
  Country: None (occurrence: None)
  Receive Date: 20060711
  Receipt Date: 20060629
  Transmission Date: 20061208
  Serious: Yes (Death, Life-Threatening, Hospitalization, Disabling)
  Sender: FDA-Public Use
  Company Number: E044-318-3803

PATIENT
  Age: 70 Year
  Sex: Male
  Weight: 81.9 kg

DRUGS (20)
  1. DONEPEZIL HCL [Suspect]
     Indication: DEMENTIA
     Dosage: 5 MG, 1 IN 1 D, ORAL
     Route: 048
     Dates: start: 20040817, end: 20050622
  2. DONEPEZIL HCL [Suspect]
     Indication: DEMENTIA
     Dosage: 5 MG, 1 IN 1 D, ORAL
     Route: 048
     Dates: start: 20050624, end: 20050715
  3. DONEPEZIL HCL [Suspect]
     Indication: DEMENTIA
     Dosage: DOUBLEBLIND, 1 IN 1, ORAL
     Route: 048
     Dates: start: 20040204, end: 20040816
  4. LEVODOPA (LEVODOPA) [Concomitant]
  5. OMEPRAZOLE [Concomitant]
  6. RAMIPRIL [Concomitant]
  7. CAVERJET (ALPROSTADIL) [Concomitant]
  8. DEBRISINOL (TOLTERODINE L-TARTRATE) [Concomitant]
  9. AMBROXOL (AMBROXOL) [Concomitant]
  10. PIPERACILLIN [Concomitant]
  11. COMBACTIM (SULBACTAM SODIUM) [Concomitant]
  12. FRAXIPARIN (HEPARIN-FRACTION, CALCIUM SALT) [Concomitant]
  13. NEXIUM [Concomitant]
  14. METOPROLOL TARTRATE [Concomitant]
  15. ALLOPURINOL [Concomitant]
  16. NORVASC [Concomitant]
  17. COPYRKAL (COPYRKAL) [Concomitant]
  18. METOPROLOL (METOPROLOL) [Concomitant]
  19. CARMEN (LERCANIDIPINE) [Concomitant]
  20. MOTILIUM [Concomitant]

REACTIONS (9)
  - ARRHYTHMIA [None]
  - CARDIAC ARREST [None]
  - CEREBRAL HAEMORRHAGE [None]
  - CONVULSION [None]
  - HYPERCAPNIA [None]
  - HYPOXIA [None]
  - PNEUMONIA ASPIRATION [None]
  - RESPIRATORY FAILURE [None]
  - SICK SINUS SYNDROME [None]
